FAERS Safety Report 8837740 (Version 6)
Quarter: 2013Q1

REPORT INFORMATION
  Report Type: Spontaneous
  Country: JP (occurrence: JP)
  Receive Date: 20121012
  Receipt Date: 20130107
  Transmission Date: 20140127
  Serious: Yes (Hospitalization, Other)
  Sender: FDA-Public Use
  Company Number: JP-AMGEN-JPNSP2012064361

PATIENT
  Age: 54 Year
  Sex: Female
  Weight: 45.8 kg

DRUGS (22)
  1. ENBREL [Suspect]
     Indication: RHEUMATOID ARTHRITIS
     Dosage: 25 MG, WEEKLY
     Dates: start: 20110214, end: 20110919
  2. ENBREL [Suspect]
     Dosage: 50 MG, WEEKLY
     Dates: start: 20110926, end: 20111010
  3. ENBREL [Suspect]
     Dosage: 25 MG, WEEKLY
     Dates: start: 20111017, end: 20111107
  4. ENBREL [Suspect]
     Dosage: 25 MG,  EVERY 2 WEEKS
     Dates: start: 20111114, end: 20111128
  5. RIDAURA [Concomitant]
     Dosage: 3 MG, 1X/DAY
     Route: 048
     Dates: end: 20110223
  6. PREDONINE                          /00016201/ [Concomitant]
     Dosage: 5 MG, 1X/DAY
     Route: 048
  7. PREDNISOLONE [Concomitant]
     Dosage: 1 MG, 1X/DAY
     Route: 048
  8. FAMOTIDINE [Concomitant]
     Dosage: 10 MG, 2X/DAY
     Route: 048
     Dates: start: 20090520, end: 20110617
  9. AZULFIDINE EN [Concomitant]
     Dosage: 250 MG, 2X/DAY
     Route: 048
  10. SELBEX [Concomitant]
     Dosage: 50 MG, 2X/DAY
     Route: 048
  11. LOXONIN [Concomitant]
     Dosage: 60 MG, 2X/DAY
     Route: 048
  12. BONALON [Concomitant]
     Dosage: 35 MG, WEEKLY
     Route: 048
     Dates: start: 20080519
  13. DEPAS [Concomitant]
     Dosage: 0.5 MG, 1X/DAY
     Route: 048
     Dates: start: 20110303, end: 20110304
  14. SAWACILLIN [Concomitant]
     Dosage: 250 MG, 1X/DAY
     Route: 048
     Dates: start: 20110303, end: 20110304
  15. ADALAT CR [Concomitant]
     Dosage: 20 MG, 1X/DAY
     Route: 048
     Dates: start: 20110304
  16. LENDORMIN [Concomitant]
     Dosage: UNK
     Route: 048
     Dates: start: 20110304, end: 20110309
  17. IRBETAN [Concomitant]
     Dosage: 100 MG, 1X/DAY
     Route: 048
     Dates: start: 20110304, end: 20110529
  18. CRAVIT [Concomitant]
     Dosage: 250 MG, 1X/DAY
     Route: 048
     Dates: start: 20110328, end: 20110401
  19. U PAN [Concomitant]
     Dosage: 0.5 MG, AS NEEDED
     Route: 048
     Dates: start: 20110518, end: 20110528
  20. TAKEPRON [Concomitant]
     Dosage: 30 MG, 1X/DAY
     Route: 048
     Dates: start: 20110617
  21. PROGRAF [Concomitant]
     Dosage: 0.5 MG, 1X/DAY
     Route: 048
     Dates: start: 20111017
  22. MUCODYNE [Concomitant]
     Dosage: 250 MG, 1X/DAY
     Route: 048
     Dates: start: 20111017, end: 20111215

REACTIONS (1)
  - Henoch-Schonlein purpura nephritis [Recovering/Resolving]
